FAERS Safety Report 7790753-7 (Version None)
Quarter: 2011Q3

REPORT INFORMATION
  Report Type: 
  Country: None (occurrence: None)
  Receive Date: 20110930
  Receipt Date: 20110927
  Transmission Date: 20111222
  Serious: Yes (Other)
  Sender: FDA-Public Use
  Company Number: US-ABBOTT-11P-163-0858219-00

PATIENT
  Sex: Female
  Weight: 63.56 kg

DRUGS (10)
  1. PRENATAL VITAMINS [Concomitant]
     Indication: PRODUCT USED FOR UNKNOWN INDICATION
     Dosage: 1 PILL, ONCE DAILY
     Route: 048
     Dates: start: 20101009, end: 20110124
  2. FLU VACCINE NOS [Concomitant]
     Indication: ANTIVIRAL PROPHYLAXIS
     Dosage: 1 SHOT, ONCE DAILY
     Route: 050
     Dates: start: 20101026, end: 20101026
  3. CAFFEINE [Concomitant]
     Indication: PRODUCT USED FOR UNKNOWN INDICATION
     Dosage: 1.67 SERVINGS OF MOUNTAIN DEW DAILY
     Route: 048
     Dates: start: 20101009, end: 20110124
  4. CHOLESTYRAMINE [Concomitant]
     Indication: CROHN'S DISEASE
     Route: 048
     Dates: start: 20101009, end: 20110124
  5. PAXIL [Concomitant]
     Indication: ANXIETY
  6. ALBUTEROL [Concomitant]
     Indication: HYPERSENSITIVITY
     Dosage: 2 TOTAL
     Route: 055
     Dates: start: 20101009, end: 20101122
  7. HUMIRA [Suspect]
     Indication: CROHN'S DISEASE
     Route: 050
     Dates: start: 20101009, end: 20110124
  8. COFFEE [Concomitant]
     Indication: PRODUCT USED FOR UNKNOWN INDICATION
     Dosage: 1 SERVING EVERY 2 WEEKS
     Route: 048
     Dates: start: 20101009, end: 20110101
  9. TYLENOL-500 [Concomitant]
     Indication: BACK PAIN
     Dosage: 2 TOTAL
     Route: 048
     Dates: start: 20101009, end: 20101122
  10. PAXIL [Concomitant]
     Indication: DEPRESSION
     Route: 048
     Dates: start: 20101009, end: 20110124

REACTIONS (6)
  - ANXIETY [None]
  - VAGINAL HAEMORRHAGE [None]
  - FOETAL GROWTH RESTRICTION [None]
  - FOETAL HEART RATE ABNORMAL [None]
  - ABORTION SPONTANEOUS [None]
  - CHEST PAIN [None]
